FAERS Safety Report 7296760-5 (Version None)
Quarter: 2011Q1

REPORT INFORMATION
  Report Type: 
  Country: None (occurrence: None)
  Receive Date: 20110216
  Receipt Date: 20110214
  Transmission Date: 20110831
  Serious: Yes (Other)
  Sender: FDA-Public Use
  Company Number: A0913419A

PATIENT
  Age: 68 Year
  Sex: Female

DRUGS (4)
  1. PROPAFENONE HYDROCHLORIDE [Suspect]
     Indication: ARRHYTHMIA
     Dosage: 325MG TWICE PER DAY
     Route: 048
     Dates: start: 20110201
  2. NEXIUM [Concomitant]
  3. ASPIRIN [Concomitant]
  4. LISINOPRIL [Concomitant]

REACTIONS (2)
  - DRUG INEFFECTIVE [None]
  - ANGINA PECTORIS [None]
